FAERS Safety Report 7979203-5 (Version None)
Quarter: 2011Q4

REPORT INFORMATION
  Report Type: 
  Country: None (occurrence: None)
  Receive Date: 20111214
  Receipt Date: 20111206
  Transmission Date: 20120403
  Serious: Yes (Other)
  Sender: FDA-Public Use
  Company Number: US-BAYER-2011-069703

PATIENT
  Age: 45 Year
  Sex: Female
  Weight: 80.726 kg

DRUGS (2)
  1. MIRENA [Suspect]
     Indication: CONTRACEPTION
  2. MIRENA [Suspect]
     Indication: MENORRHAGIA
     Dosage: UNK
     Route: 015
     Dates: start: 20110803, end: 20110803

REACTIONS (5)
  - DEVICE DISLOCATION [None]
  - ABDOMINAL PAIN [None]
  - MEDICAL DEVICE DISCOMFORT [None]
  - DEVICE DIFFICULT TO USE [None]
  - DEVICE EXPULSION [None]
